FAERS Safety Report 15009034 (Version 1)
Quarter: 2018Q2

REPORT INFORMATION
  Report Type: Spontaneous
  Country: FR (occurrence: FR)
  Receive Date: 20180614
  Receipt Date: 20180614
  Transmission Date: 20180711
  Serious: Yes (Death)
  Sender: FDA-Public Use
  Company Number: FR-TEVA-2018-FR-906685

PATIENT
  Age: 74 Year
  Sex: Male

DRUGS (1)
  1. CARBOPLATIN. [Suspect]
     Active Substance: CARBOPLATIN
     Indication: BRONCHIAL CARCINOMA
     Dosage: UNKNOWN
     Route: 042
     Dates: start: 20180308, end: 20180308

REACTIONS (4)
  - Septic shock [Fatal]
  - Oral fungal infection [Fatal]
  - Febrile bone marrow aplasia [Fatal]
  - Drug interaction [Fatal]

NARRATIVE: CASE EVENT DATE: 20180308
